FAERS Safety Report 9148274 (Version 2)
Quarter: 2013Q1

REPORT INFORMATION
  Report Type: Spontaneous
  Country: US (occurrence: None)
  Receive Date: 20130215
  Receipt Date: 20130225
  Transmission Date: 20140127
  Serious: Yes (Death)
  Sender: FDA-Public Use
  Company Number: ADR-2013-00240

PATIENT
  Sex: Female

DRUGS (1)
  1. LIORESAL INTRATHECAL [Suspect]

REACTIONS (1)
  - Status epilepticus [None]
